FAERS Safety Report 4827769-6 (Version None)
Quarter: 2005Q4

REPORT INFORMATION
  Report Type: 
  Country: None (occurrence: None)
  Receive Date: 20051110
  Receipt Date: 20051026
  Transmission Date: 20060501
  Serious: Yes (Hospitalization)
  Sender: FDA-Public Use
  Company Number: 2005-BP-16856BP

PATIENT
  Age: 39 Year
  Sex: Male
  Weight: 68.8 kg

DRUGS (5)
  1. VIRAMUNE                                 (PRETREATMENT) (NEVIRAPINE) [Suspect]
     Indication: HIV INFECTION
     Dosage: 200 MG, PO
     Route: 048
  2. HCTZ (HYDROCHLOROTHIAZIDE) [Suspect]
     Indication: HYPERTENSION
     Dosage: 25 MG (25 MG), PO
     Route: 048
     Dates: start: 20050630, end: 20050911
  3. LISINOPRIL [Concomitant]
  4. CELEXA [Concomitant]
  5. PREVACID [Concomitant]

REACTIONS (5)
  - DEHYDRATION [None]
  - DYSPHAGIA [None]
  - ORAL CANDIDIASIS [None]
  - ORAL INTAKE REDUCED [None]
  - SYNCOPE [None]
